FAERS Safety Report 21852399 (Version 4)
Quarter: 2023Q2

REPORT INFORMATION
  Report Type: Report from Study
  Country: US (occurrence: US)
  Receive Date: 20230112
  Receipt Date: 20230516
  Transmission Date: 20230722
  Serious: No
  Sender: FDA-Public Use
  Company Number: US-002147023-NVSC2023US006141

PATIENT
  Age: 69 Year
  Sex: Male

DRUGS (1)
  1. ENTRESTO [Suspect]
     Active Substance: SACUBITRIL\VALSARTAN
     Indication: Product used for unknown indication
     Dosage: 1 DOSAGE FORM, BID
     Route: 048
     Dates: start: 202212

REACTIONS (10)
  - Pain [Unknown]
  - Weight decreased [Unknown]
  - Pollakiuria [Unknown]
  - Blood cholesterol abnormal [Unknown]
  - Dyspnoea [Unknown]
  - Hyperhidrosis [Unknown]
  - Pulse abnormal [Unknown]
  - Body temperature increased [Unknown]
  - Nausea [Unknown]
  - Dizziness postural [Not Recovered/Not Resolved]

NARRATIVE: CASE EVENT DATE: 20230110
